FAERS Safety Report 24893345 (Version 2)
Quarter: 2025Q1

REPORT INFORMATION
  Report Type: Spontaneous
  Country: AU (occurrence: AU)
  Receive Date: 20250128
  Receipt Date: 20250211
  Transmission Date: 20250409
  Serious: Yes (Hospitalization)
  Sender: NOVO NORDISK
  Company Number: AU-NOVOPROD-1355567

PATIENT
  Sex: Female

DRUGS (3)
  1. NOVORAPID [Suspect]
     Active Substance: INSULIN ASPART
     Indication: Product used for unknown indication
  2. NOVORAPID [Suspect]
     Active Substance: INSULIN ASPART
  3. FIASP [Suspect]
     Active Substance: INSULIN ASPART
     Indication: Product used for unknown indication

REACTIONS (5)
  - Blood glucose fluctuation [Unknown]
  - Emotional distress [Unknown]
  - Malaise [Unknown]
  - Headache [Unknown]
  - Pain [Unknown]
